FAERS Safety Report 17616345 (Version 3)
Quarter: 2020Q2

REPORT INFORMATION
  Report Type: Report from Study
  Country: None (occurrence: US)
  Receive Date: 20200402
  Receipt Date: 20200607
  Transmission Date: 20200713
  Serious: Yes (Other)
  Sender: FDA-Public Use
  Company Number: US-ABBVIE-20K-163-3347695-00

PATIENT
  Sex: Female
  Weight: 84.9 kg

DRUGS (1)
  1. HUMIRA [Suspect]
     Active Substance: ADALIMUMAB
     Indication: PRODUCT USED FOR UNKNOWN INDICATION
     Route: 058

REACTIONS (3)
  - Frequent bowel movements [Recovering/Resolving]
  - Malaise [Unknown]
  - Coma [Recovered/Resolved]
